FAERS Safety Report 21286864 (Version 2)
Quarter: 2022Q4

REPORT INFORMATION
  Report Type: Report from Study
  Country: US (occurrence: US)
  Receive Date: 20220902
  Receipt Date: 20221129
  Transmission Date: 20230113
  Serious: Yes (Hospitalization, Other)
  Sender: FDA-Public Use
  Company Number: US-BRISTOL-MYERS SQUIBB COMPANY-2022-096836

PATIENT
  Age: 70 Year
  Sex: Female
  Weight: 62 kg

DRUGS (10)
  1. AZACITIDINE [Suspect]
     Active Substance: AZACITIDINE
     Indication: Acute myeloid leukaemia
     Dosage: 1-5 Q 29 DAYS
     Route: 042
     Dates: start: 20220711, end: 20220715
  2. AZACITIDINE [Suspect]
     Active Substance: AZACITIDINE
     Dosage: DOSE 75; FREQUENCY: 1-5 @ 28 DAYS
     Route: 058
     Dates: start: 20220404, end: 20220408
  3. VENETOCLAX [Suspect]
     Active Substance: VENETOCLAX
     Indication: Acute myeloid leukaemia
     Route: 048
     Dates: start: 20220822
  4. VALACYCLOVIR HYDROCHLORIDE [Concomitant]
     Active Substance: VALACYCLOVIR HYDROCHLORIDE
     Indication: Product used for unknown indication
     Route: 048
     Dates: start: 20220511
  5. VORICONAZOLE [Concomitant]
     Active Substance: VORICONAZOLE
     Indication: Product used for unknown indication
     Route: 042
     Dates: start: 20220917, end: 20220924
  6. VANCOMYCIN [Concomitant]
     Active Substance: VANCOMYCIN
     Indication: Product used for unknown indication
     Route: 042
     Dates: start: 20220918, end: 20220920
  7. DECADRON [Concomitant]
     Active Substance: DEXAMETHASONE
     Indication: Product used for unknown indication
     Route: 042
     Dates: start: 20220917, end: 20220919
  8. MEROPENEM [Concomitant]
     Active Substance: MEROPENEM
     Indication: Product used for unknown indication
     Route: 042
     Dates: start: 20220911, end: 20220924
  9. DIFLUCAN [Concomitant]
     Active Substance: FLUCONAZOLE
     Indication: Product used for unknown indication
     Route: 048
     Dates: start: 20220601
  10. LEVAQUIN [Concomitant]
     Active Substance: LEVOFLOXACIN
     Indication: Product used for unknown indication
     Route: 048
     Dates: start: 20220601

REACTIONS (8)
  - Bacteraemia [Recovered/Resolved]
  - Neutropenic sepsis [Recovered/Resolved]
  - Off label use [Unknown]
  - Clostridial infection [Unknown]
  - Cellulitis staphylococcal [Unknown]
  - Klebsiella infection [Recovered/Resolved]
  - Urinary tract infection [Unknown]
  - Therapy non-responder [Unknown]

NARRATIVE: CASE EVENT DATE: 20220716
